FAERS Safety Report 5672201-6 (Version None)
Quarter: 2008Q1

REPORT INFORMATION
  Report Type: 
  Country: None (occurrence: None)
  Receive Date: 20080319
  Receipt Date: 20080312
  Transmission Date: 20080703
  Serious: Yes (Other)
  Sender: FDA-Public Use
  Company Number: BR-AVENTIS-200812373GDDC

PATIENT
  Age: 70 Year
  Sex: Female

DRUGS (5)
  1. LANTUS [Suspect]
     Route: 058
     Dates: start: 20030101
  2. OPTIPEN (INSULIN PUMP) [Suspect]
     Route: 058
     Dates: start: 20030101
  3. AAS [Concomitant]
     Route: 048
     Dates: start: 20070101
  4. SELO-ZOK [Concomitant]
     Route: 048
     Dates: start: 20050201
  5. LEVEMIR [Concomitant]
     Route: 058
     Dates: start: 20050101

REACTIONS (5)
  - BLOOD GLUCOSE FLUCTUATION [None]
  - DEPRESSION [None]
  - HYPOGLYCAEMIA [None]
  - VISUAL DISTURBANCE [None]
  - WEIGHT INCREASED [None]
